FAERS Safety Report 9016896 (Version 1)
Quarter: 2013Q1

REPORT INFORMATION
  Report Type: Spontaneous
  Country: US (occurrence: None)
  Receive Date: 20130116
  Receipt Date: 20130116
  Transmission Date: 20140127
  Serious: No
  Sender: FDA-Public Use
  Company Number: US-HORIZON-DUE-0016-2012

PATIENT
  Age: 15 Year
  Sex: Female
  Weight: 50 kg

DRUGS (1)
  1. DUEXIS [Suspect]
     Indication: INFLAMMATION
     Dosage: 1 DF QD IN SEP-2012 FOR 1 WEEK?1DF QD ON 8-OCT-2012
     Route: 048
     Dates: start: 20120920, end: 20121008

REACTIONS (3)
  - Hypersensitivity [None]
  - Headache [None]
  - Pyrexia [None]
